FAERS Safety Report 12695570 (Version 1)
Quarter: 2016Q3

REPORT INFORMATION
  Report Type: Spontaneous
  Country: None (occurrence: US)
  Receive Date: 20160829
  Receipt Date: 20160829
  Transmission Date: 20161109
  Serious: No
  Sender: FDA-Public Use
  Company Number: US-KALEO, INC-2015SA175081

PATIENT
  Sex: 0

DRUGS (4)
  1. BENADRYL [Concomitant]
     Active Substance: DIPHENHYDRAMINE HYDROCHLORIDE
     Dates: start: 2015
  2. AUVI-Q [Suspect]
     Active Substance: EPINEPHRINE
     Indication: ANAPHYLACTIC REACTION
     Dosage: TWICE, IM OR SC
     Dates: start: 2015, end: 2015
  3. ALBUTEROL. [Concomitant]
     Active Substance: ALBUTEROL
     Dates: start: 2015
  4. RACEMIC EPINEPHRINE [Concomitant]
     Dates: start: 2015

REACTIONS (1)
  - Anxiety [None]

NARRATIVE: CASE EVENT DATE: 2015
